FAERS Safety Report 20527663 (Version 1)
Quarter: 2022Q1

REPORT INFORMATION
  Report Type: Spontaneous
  Country: US (occurrence: US)
  Receive Date: 20220228
  Receipt Date: 20220228
  Transmission Date: 20220423
  Serious: No
  Sender: FDA-Public Use
  Company Number: US-PERRIGO-21US029317

PATIENT
  Age: 75 Year
  Sex: Female
  Weight: 76.644 kg

DRUGS (8)
  1. ESTRADIOL [Suspect]
     Active Substance: ESTRADIOL
     Indication: Vulvitis
     Dosage: 2 G, QD, AT NIGHT
     Route: 067
     Dates: start: 20210831, end: 20210914
  2. ESTRADIOL [Suspect]
     Active Substance: ESTRADIOL
     Dosage: 1 G, 3 TIMES WEEKLY
     Route: 067
     Dates: start: 20210922, end: 20211004
  3. AMLODIPINE [Concomitant]
     Active Substance: AMLODIPINE BESYLATE
     Indication: Hypertension
     Dosage: 5 MG, QD
     Route: 065
     Dates: start: 202107
  4. TYLENOL                            /00020001/ [Concomitant]
     Indication: Pain
     Dosage: 500 MG, PRN
     Route: 065
  5. PROBIOTIC                          /06395501/ [Concomitant]
     Indication: Routine health maintenance
     Dosage: UNK
     Route: 065
  6. VITAMIN D                          /00107901/ [Concomitant]
     Indication: Supplementation therapy
     Dosage: 800 IU, QD
     Route: 065
  7. LEVOTHYROXINE [Concomitant]
     Active Substance: LEVOTHYROXINE
     Indication: Hypothyroidism
     Dosage: 50 MG, QD
     Route: 065
  8. LISINOPRIL [Concomitant]
     Active Substance: LISINOPRIL
     Indication: Hypertension
     Dosage: 20 MG, QD
     Route: 065

REACTIONS (3)
  - Vulvovaginal burning sensation [Recovered/Resolved]
  - Vaginal haemorrhage [Recovered/Resolved]
  - Off label use [Recovered/Resolved]

NARRATIVE: CASE EVENT DATE: 20210831
